FAERS Safety Report 4633166-9 (Version None)
Quarter: 2005Q2

REPORT INFORMATION
  Report Type: 
  Country: None (occurrence: None)
  Receive Date: 20050411
  Receipt Date: 20050411
  Transmission Date: 20051028
  Serious: Yes (Other)
  Sender: FDA-Public Use
  Company Number: None

PATIENT
  Age: 60 Year
  Sex: Female
  Weight: 70.3075 kg

DRUGS (5)
  1. VAGIFEM [Suspect]
     Indication: HYSTERECTOMY
     Dosage: 1 TAB VAGINALLY 3X/WK
     Route: 067
     Dates: start: 20050307, end: 20050319
  2. VAGIFEM [Suspect]
     Indication: PREOPERATIVE CARE
     Dosage: 1 TAB VAGINALLY 3X/WK
     Route: 067
     Dates: start: 20050307, end: 20050319
  3. QUININE SULFATE [Suspect]
     Indication: MUSCLE SPASMS
     Dosage: 260 MG, 1 UP TO 4X/MO      YEARS
  4. BENADRYL [Concomitant]
  5. WELLBUTRIN [Concomitant]

REACTIONS (6)
  - DRUG INTERACTION [None]
  - EPISTAXIS [None]
  - MELAENA [None]
  - PROTHROMBIN TIME PROLONGED [None]
  - SINUSITIS [None]
  - THROMBOSIS [None]
